FAERS Safety Report 9848612 (Version 1)
Quarter: 2014Q1

REPORT INFORMATION
  Report Type: Spontaneous
  Country: US (occurrence: None)
  Receive Date: 20140127
  Receipt Date: 20140127
  Transmission Date: 20141002
  Serious: Yes (Other)
  Sender: FDA-Public Use
  Company Number: None

PATIENT
  Sex: Male

DRUGS (3)
  1. REVKUNUD [Suspect]
     Indication: PLASMA CELL MYELOMA
     Dates: start: 201101
  2. VELCADE MILLENNIUM [Suspect]
     Indication: PLASMA CELL MYELOMA
     Route: 042
     Dates: start: 200912, end: 201003
  3. DEXAMETHASONE [Concomitant]

REACTIONS (5)
  - Immune system disorder [None]
  - Malaise [None]
  - Nasopharyngitis [None]
  - Pneumonia [None]
  - Neuropathy peripheral [None]
